FAERS Safety Report 5696707-9 (Version None)
Quarter: 2008Q2

REPORT INFORMATION
  Report Type: 
  Country: None (occurrence: None)
  Receive Date: 20080408
  Receipt Date: 20080401
  Transmission Date: 20081010
  Serious: Yes (Life-Threatening, Other)
  Sender: FDA-Public Use
  Company Number: JP-MERCK-0803USA02707

PATIENT
  Age: 29 Year
  Sex: Female
  Weight: 46 kg

DRUGS (6)
  1. SINGULAIR [Suspect]
     Indication: RHINITIS ALLERGIC
     Route: 048
     Dates: start: 20080221, end: 20080224
  2. SINGULAIR [Suspect]
     Indication: NASAL CONGESTION
     Route: 048
     Dates: start: 20080221, end: 20080224
  3. IBUPROFEN [Concomitant]
     Indication: PHARYNGOLARYNGEAL PAIN
     Route: 048
     Dates: start: 20080221, end: 20080224
  4. CARBOCYSTEINE [Concomitant]
     Indication: UPPER RESPIRATORY TRACT INFLAMMATION
     Route: 048
     Dates: start: 20080221, end: 20080224
  5. PREDNISOLONE [Concomitant]
     Indication: UPPER RESPIRATORY TRACT INFLAMMATION
     Route: 048
     Dates: start: 20080221, end: 20080224
  6. OLOPATADINE HYDROCHLORIDE [Concomitant]
     Indication: UPPER RESPIRATORY TRACT INFLAMMATION
     Route: 048
     Dates: start: 20080221, end: 20080224

REACTIONS (2)
  - DYSPNOEA [None]
  - RASH GENERALISED [None]
